FAERS Safety Report 24162620 (Version 2)
Quarter: 2024Q3

REPORT INFORMATION
  Report Type: Spontaneous
  Country: US (occurrence: US)
  Receive Date: 20240801
  Receipt Date: 20240830
  Transmission Date: 20241017
  Serious: Yes (Hospitalization, Other)
  Sender: BRISTOL MYERS SQUIBB
  Company Number: US-BRISTOL-MYERS SQUIBB COMPANY-2024-121531

PATIENT
  Age: 72 Year
  Sex: Male
  Weight: 82.55 kg

DRUGS (1)
  1. REVLIMID [Suspect]
     Active Substance: LENALIDOMIDE
     Indication: Plasma cell myeloma
     Dosage: 14D EVERY 21D
     Route: 048
     Dates: start: 20240501

REACTIONS (3)
  - Diverticulitis [Unknown]
  - Off label use [Unknown]
  - Taste disorder [Unknown]

NARRATIVE: CASE EVENT DATE: 20240701
